FAERS Safety Report 9698161 (Version 1)
Quarter: 2013Q4

REPORT INFORMATION
  Report Type: Spontaneous
  Country: IT (occurrence: IT)
  Receive Date: 20131120
  Receipt Date: 20131120
  Transmission Date: 20140711
  Serious: Yes (Life-Threatening, Hospitalization)
  Sender: FDA-Public Use
  Company Number: IT-TEVA-444415ISR

PATIENT
  Age: 72 Year
  Sex: Male

DRUGS (2)
  1. SODIUM VALPROATE [Suspect]
     Indication: MENTAL DISORDER
     Dosage: CONTROLLED RELEASE, 60 GR
     Route: 048
  2. SODIUM VALPROATE [Suspect]
     Indication: INTENTIONAL OVERDOSE

REACTIONS (9)
  - Ventricular tachycardia [Recovered/Resolved]
  - Nodal rhythm [Recovered/Resolved]
  - Haemodynamic instability [Recovered/Resolved]
  - Intentional overdose [Recovered/Resolved]
  - Hyperammonaemia [Recovered/Resolved]
  - Hypokalaemia [Recovered/Resolved]
  - Thrombocytopenia [Unknown]
  - Electrocardiogram QT prolonged [Recovered/Resolved]
  - Miosis [Unknown]
